FAERS Safety Report 24437382 (Version 8)
Quarter: 2025Q1

REPORT INFORMATION
  Report Type: Report from Study
  Country: IT (occurrence: IT)
  Receive Date: 20241015
  Receipt Date: 20250204
  Transmission Date: 20250409
  Serious: Yes (Death, Life-Threatening, Hospitalization)
  Sender: PFIZER
  Company Number: IT-PFIZER INC-PV202400133022

PATIENT
  Age: 79 Year
  Sex: Male
  Weight: 60 kg

DRUGS (52)
  1. DOXORUBICIN HYDROCHLORIDE [Suspect]
     Active Substance: DOXORUBICIN HYDROCHLORIDE
     Indication: Diffuse large B-cell lymphoma stage III
     Route: 042
     Dates: start: 20240806, end: 20240806
  2. DOXORUBICIN HYDROCHLORIDE [Suspect]
     Active Substance: DOXORUBICIN HYDROCHLORIDE
     Route: 042
     Dates: start: 20240905, end: 20240905
  3. METHYLPREDNISOLONE SODIUM SUCCINATE [Suspect]
     Active Substance: METHYLPREDNISOLONE SODIUM SUCCINATE
     Indication: Diffuse large B-cell lymphoma stage III
     Route: 042
     Dates: start: 20240805, end: 20240805
  4. METHYLPREDNISOLONE SODIUM SUCCINATE [Suspect]
     Active Substance: METHYLPREDNISOLONE SODIUM SUCCINATE
     Route: 042
     Dates: start: 20240826, end: 20240829
  5. METHYLPREDNISOLONE SODIUM SUCCINATE [Suspect]
     Active Substance: METHYLPREDNISOLONE SODIUM SUCCINATE
     Route: 042
     Dates: start: 20240905, end: 20240905
  6. RITUXIMAB [Suspect]
     Active Substance: RITUXIMAB
     Indication: Diffuse large B-cell lymphoma stage III
     Route: 042
     Dates: start: 20240805, end: 20240805
  7. RITUXIMAB [Suspect]
     Active Substance: RITUXIMAB
     Route: 042
     Dates: start: 20240905, end: 20240905
  8. VINCRISTINE SULFATE [Suspect]
     Active Substance: VINCRISTINE SULFATE
     Indication: Diffuse large B-cell lymphoma stage III
     Route: 042
     Dates: start: 20240806, end: 20240806
  9. VINCRISTINE SULFATE [Suspect]
     Active Substance: VINCRISTINE SULFATE
     Route: 042
     Dates: start: 20240905, end: 20240905
  10. EPCORITAMAB [Suspect]
     Active Substance: EPCORITAMAB
     Indication: Diffuse large B-cell lymphoma stage III
     Route: 058
     Dates: start: 20240806, end: 20240806
  11. EPCORITAMAB [Suspect]
     Active Substance: EPCORITAMAB
     Route: 058
     Dates: start: 20240813, end: 20240813
  12. EPCORITAMAB [Suspect]
     Active Substance: EPCORITAMAB
     Route: 058
     Dates: start: 20240826, end: 20240912
  13. CYCLOPHOSPHAMIDE [Suspect]
     Active Substance: CYCLOPHOSPHAMIDE
     Indication: Diffuse large B-cell lymphoma stage III
     Route: 042
     Dates: start: 20240806, end: 20240806
  14. CYCLOPHOSPHAMIDE [Suspect]
     Active Substance: CYCLOPHOSPHAMIDE
     Route: 042
     Dates: start: 20240905, end: 20240905
  15. LORATADINE [Concomitant]
     Active Substance: LORATADINE
     Indication: Premedication
     Route: 048
     Dates: start: 20240912, end: 20240912
  16. ACETAMINOPHEN [Concomitant]
     Active Substance: ACETAMINOPHEN
     Indication: Premedication
     Dates: start: 20240826, end: 20240827
  17. ACETAMINOPHEN [Concomitant]
     Active Substance: ACETAMINOPHEN
     Route: 048
     Dates: start: 20240912, end: 20240912
  18. PREDNISONE [Concomitant]
     Active Substance: PREDNISONE
     Indication: Prophylaxis
     Route: 048
     Dates: start: 20240816, end: 20240816
  19. PREDNISONE [Concomitant]
     Active Substance: PREDNISONE
     Dates: start: 20240906, end: 20240909
  20. METHYLPREDNISOLONE [Concomitant]
     Active Substance: METHYLPREDNISOLONE
     Indication: Prophylaxis
     Route: 042
     Dates: start: 20240826, end: 20240829
  21. DEXAMETHASONE [Concomitant]
     Active Substance: DEXAMETHASONE
     Indication: Prophylaxis
     Dates: start: 20240826, end: 20240826
  22. DEXAMETHASONE [Concomitant]
     Active Substance: DEXAMETHASONE
     Dates: start: 20240912, end: 20240912
  23. PANTOPRAZOLE [Concomitant]
     Active Substance: PANTOPRAZOLE
     Dates: start: 20240725
  24. ALLOPURINOL [Concomitant]
     Active Substance: ALLOPURINOL
     Dates: start: 20240725
  25. ACYCLOVIR [Concomitant]
     Active Substance: ACYCLOVIR
     Dates: start: 20240725
  26. SULFAMETHOXAZOLE\TRIMETHOPRIM [Concomitant]
     Active Substance: SULFAMETHOXAZOLE\TRIMETHOPRIM
     Dates: start: 20240725, end: 20240912
  27. LAMIVUDINE [Concomitant]
     Active Substance: LAMIVUDINE
     Dates: start: 20240725
  28. CYANOCOBALAMIN [Concomitant]
     Active Substance: CYANOCOBALAMIN
     Dates: start: 20240725
  29. FOLIC ACID [Concomitant]
     Active Substance: FOLIC ACID
     Dates: start: 20240725
  30. TAMSULOSIN [Concomitant]
     Active Substance: TAMSULOSIN
     Dates: start: 20240725
  31. SIMVASTATIN [Concomitant]
     Active Substance: SIMVASTATIN
     Dates: start: 20240725
  32. LACIDIPINE [Concomitant]
     Active Substance: LACIDIPINE
     Dates: start: 20240725
  33. METFORMIN HYDROCHLORIDE\PIOGLITAZONE HYDROCHLORIDE [Concomitant]
     Active Substance: METFORMIN HYDROCHLORIDE\PIOGLITAZONE HYDROCHLORIDE
     Dates: start: 20240725, end: 20240819
  34. SITAGLIPTIN [Concomitant]
     Active Substance: SITAGLIPTIN
     Dates: start: 20240725, end: 20240819
  35. PREDNISONE [Concomitant]
     Active Substance: PREDNISONE
     Indication: Pneumonia
     Dates: start: 20240820, end: 20240820
  36. NISTATIN [Concomitant]
     Active Substance: NYSTATIN
     Dates: start: 20240813
  37. FLUCONAZOLE [Concomitant]
     Active Substance: FLUCONAZOLE
     Dates: start: 20240813
  38. FILGRASTIM [Concomitant]
     Active Substance: FILGRASTIM
     Dates: start: 20240813, end: 20240816
  39. CEFTAZIDIME [Concomitant]
     Active Substance: CEFTAZIDIME
     Dates: start: 20240819, end: 20240827
  40. AMIKACIN [Concomitant]
     Active Substance: AMIKACIN
     Dates: start: 20240819, end: 20240821
  41. ISAVUCONAZOLE [Concomitant]
     Active Substance: ISAVUCONAZOLE
     Dates: start: 20240827
  42. TOCILIZUMAB [Concomitant]
     Active Substance: TOCILIZUMAB
     Dates: start: 20240827, end: 20240827
  43. CEFIXIME [Concomitant]
     Active Substance: CEFIXIME
     Dates: start: 20240912
  44. IMMUNE GLOBULIN NOS [Concomitant]
     Active Substance: IMMUNE GLOBULIN NOS
     Dates: start: 20240821, end: 20240821
  45. PIPERACILLIN SODIUM\TAZOBACTAM SODIUM [Concomitant]
     Active Substance: PIPERACILLIN SODIUM\TAZOBACTAM SODIUM
     Dates: start: 20240827, end: 20240830
  46. CANRENONE [Concomitant]
     Active Substance: CANRENONE
     Dates: start: 20240830
  47. INSULIN HUMAN [Concomitant]
     Active Substance: INSULIN HUMAN
     Dates: start: 20240819, end: 20240819
  48. LANTUS [Concomitant]
     Active Substance: INSULIN GLARGINE
     Dates: start: 20240820
  49. LASIX [Concomitant]
     Active Substance: FUROSEMIDE
     Dates: start: 20240725, end: 20240725
  50. LASIX [Concomitant]
     Active Substance: FUROSEMIDE
     Dates: start: 20240819
  51. HUMALOG [Concomitant]
     Active Substance: INSULIN LISPRO
     Dates: start: 20240820
  52. PREDNISONE [Concomitant]
     Active Substance: PREDNISONE
     Indication: Leukaemia
     Dates: start: 20240910, end: 20240911

REACTIONS (1)
  - Septic shock [Fatal]

NARRATIVE: CASE EVENT DATE: 20240913
